FAERS Safety Report 8362039-3 (Version None)
Quarter: 2012Q2

REPORT INFORMATION
  Report Type: 
  Country: None (occurrence: None)
  Receive Date: 20120515
  Receipt Date: 20120508
  Transmission Date: 20120825
  Serious: Yes (Hospitalization)
  Sender: FDA-Public Use
  Company Number: GB-B.I. PHARMACEUTICALS,INC./RIDGEFIELD-2012-UK-00070UK

PATIENT
  Sex: Male
  Weight: 70 kg

DRUGS (5)
  1. BISOPROLOL FUMARATE [Concomitant]
     Indication: ANGINA UNSTABLE
     Dosage: 1.25 MG
     Route: 048
     Dates: start: 20110201
  2. FUROSEMIDE [Concomitant]
  3. PERINDOPRIL ERBUMINE [Concomitant]
     Indication: HYPERTENSION
     Dosage: 4 ANZ
     Route: 048
     Dates: start: 20110701
  4. PRADAXA [Suspect]
     Indication: ATRIAL FIBRILLATION
     Dosage: 220 MG
     Route: 048
     Dates: start: 20111109, end: 20111217
  5. PERINDOPRIL ERBUMINE [Concomitant]
     Indication: EJECTION FRACTION DECREASED

REACTIONS (4)
  - FEELING ABNORMAL [None]
  - HYPONATRAEMIA [None]
  - INSOMNIA [None]
  - MALAISE [None]
